FAERS Safety Report 13448328 (Version 1)
Quarter: 2017Q2

REPORT INFORMATION
  Report Type: Spontaneous
  Country: RO (occurrence: RO)
  Receive Date: 20170417
  Receipt Date: 20170417
  Transmission Date: 20170830
  Serious: Yes (Other)
  Sender: FDA-Public Use
  Company Number: RO-BAYER-2017-067519

PATIENT
  Age: 44 Year
  Sex: Female

DRUGS (2)
  1. ACETYLSALICYLIC ACID (} 100 MG) [Suspect]
     Active Substance: ASPIRIN
     Dosage: 250 MG, UNK
     Route: 048
  2. TICAGRELOR [Interacting]
     Active Substance: TICAGRELOR
     Dosage: 180 MG, UNK
     Route: 048

REACTIONS (3)
  - Drug administration error [Recovered/Resolved]
  - Labelled drug-drug interaction medication error [Recovered/Resolved]
  - Melaena [Recovered/Resolved]
